FAERS Safety Report 23274515 (Version 2)
Quarter: 2024Q1

REPORT INFORMATION
  Report Type: Spontaneous
  Country: US (occurrence: US)
  Receive Date: 20231208
  Receipt Date: 20240124
  Transmission Date: 20240409
  Serious: No
  Sender: FDA-Public Use
  Company Number: US-UNITED THERAPEUTICS-UNT-2023-034769

PATIENT
  Sex: Female

DRUGS (1)
  1. ORENITRAM [Suspect]
     Active Substance: TREPROSTINIL
     Indication: Product used for unknown indication
     Dosage: UNK
     Route: 048
     Dates: end: 2023

REACTIONS (4)
  - Malaise [Recovering/Resolving]
  - Weight decreased [Recovered/Resolved]
  - Dyspepsia [Recovering/Resolving]
  - Therapy non-responder [Unknown]
